FAERS Safety Report 7836633-X (Version None)
Quarter: 2011Q4

REPORT INFORMATION
  Report Type: 
  Country: None (occurrence: None)
  Receive Date: 20111024
  Receipt Date: 20111019
  Transmission Date: 20120403
  Serious: Yes (Death, Life-Threatening)
  Sender: FDA-Public Use
  Company Number: CH-ASTRAZENECA-2011SE63186

PATIENT
  Age: 29 Year
  Sex: Female

DRUGS (5)
  1. SEROQUEL [Suspect]
     Indication: BORDERLINE PERSONALITY DISORDER
     Route: 048
     Dates: start: 20100515, end: 20100521
  2. LORAZEPAM [Suspect]
     Route: 048
     Dates: start: 20100515, end: 20100521
  3. LAMICTAL [Suspect]
     Route: 048
     Dates: start: 20100515, end: 20100521
  4. IBUPROFEN [Suspect]
     Route: 048
     Dates: start: 20100515, end: 20100521
  5. WELLBUTRIN [Suspect]
     Route: 048
     Dates: start: 20100515, end: 20100521

REACTIONS (1)
  - COMPLETED SUICIDE [None]
